FAERS Safety Report 14080608 (Version 2)
Quarter: 2017Q4

REPORT INFORMATION
  Report Type: Report from Study
  Country: US (occurrence: US)
  Receive Date: 20171012
  Receipt Date: 20171121
  Transmission Date: 20180321
  Serious: Yes (Hospitalization)
  Sender: FDA-Public Use
  Company Number: US-EXELIXIS-XL18417010775

PATIENT
  Age: 64 Year
  Sex: Male
  Weight: 103.3 kg

DRUGS (4)
  1. XL184 [Suspect]
     Active Substance: CABOZANTINIB
     Indication: PENILE SQUAMOUS CELL CARCINOMA
     Dosage: 40 MG, QD
     Route: 048
     Dates: start: 20160615, end: 20170916
  2. NIVOLUMAB [Suspect]
     Active Substance: NIVOLUMAB
     Indication: PENILE SQUAMOUS CELL CARCINOMA
     Dosage: CYCLES 1-4, 3 MG/KG, OVER 60 MINUTES ON DAY 1
     Route: 042
     Dates: start: 20160615
  3. IPILIMUMAB [Suspect]
     Active Substance: IPILIMUMAB
     Indication: PENILE SQUAMOUS CELL CARCINOMA
     Dosage: 1 MG/KG, OVER 90 MINUTES
     Route: 042
     Dates: start: 20160615, end: 20160919
  4. NIVOLUMAB [Suspect]
     Active Substance: NIVOLUMAB
     Dosage: CYCLES 5-17 3 MG/KG, OVER 60 MINUTES ON DAYS 1 AND 15
     Route: 042
     Dates: end: 20170911

REACTIONS (1)
  - Skin infection [Not Recovered/Not Resolved]

NARRATIVE: CASE EVENT DATE: 20170916
